FAERS Safety Report 22028163 (Version 2)
Quarter: 2023Q1

REPORT INFORMATION
  Report Type: Spontaneous
  Country: US (occurrence: US)
  Receive Date: 20230223
  Receipt Date: 20230227
  Transmission Date: 20230418
  Serious: No
  Sender: FDA-Public Use
  Company Number: US-002147023-NVSC2023US041529

PATIENT

DRUGS (2)
  1. INCLISIRAN [Suspect]
     Active Substance: INCLISIRAN
     Indication: Arteriosclerosis
     Dosage: 300 MG, OTHER, (Q6 MONTHS)
     Route: 058
  2. INCLISIRAN [Suspect]
     Active Substance: INCLISIRAN
     Indication: Hyperlipidaemia

REACTIONS (2)
  - Abdominal pain [Recovered/Resolved]
  - Tenderness [Recovered/Resolved]
